FAERS Safety Report 18104494 (Version 1)
Quarter: 2020Q3

REPORT INFORMATION
  Report Type: Spontaneous
  Country: US (occurrence: US)
  Receive Date: 20200803
  Receipt Date: 20200803
  Transmission Date: 20201103
  Serious: No
  Sender: FDA-Public Use
  Company Number: None

PATIENT
  Age: 35 Year
  Sex: Female
  Weight: 99 kg

DRUGS (4)
  1. SERTRALINE 150 MG [Concomitant]
     Active Substance: SERTRALINE HYDROCHLORIDE
  2. TOPAMAX [Concomitant]
     Active Substance: TOPIRAMATE
  3. BUPROPION XL [Suspect]
     Active Substance: BUPROPION
     Indication: POSTPARTUM ANXIETY
     Dosage: ?          QUANTITY:1 TABLET(S);?
     Route: 048
     Dates: start: 20200724, end: 20200802
  4. BUPROPION 300 XL [Concomitant]

REACTIONS (6)
  - Product substitution issue [None]
  - Headache [None]
  - Paraesthesia [None]
  - Suicidal ideation [None]
  - Nausea [None]
  - Product complaint [None]
